FAERS Safety Report 17908666 (Version 5)
Quarter: 2025Q2

REPORT INFORMATION
  Report Type: Spontaneous
  Country: TR (occurrence: TR)
  Receive Date: 20200617
  Receipt Date: 20250421
  Transmission Date: 20250716
  Serious: Yes (Other)
  Sender: BAYER HEALTHCARE PHARMACEUTICALS INC.
  Company Number: TR-BAYER-2020-115609

PATIENT
  Age: 25 Year
  Sex: Female
  Weight: 54 kg

DRUGS (6)
  1. YASMIN [Suspect]
     Active Substance: DROSPIRENONE\ETHINYL ESTRADIOL
     Indication: Ovarian cyst
     Route: 048
     Dates: start: 2008, end: 20240803
  2. YASMIN [Suspect]
     Active Substance: DROSPIRENONE\ETHINYL ESTRADIOL
     Indication: Heavy menstrual bleeding
     Route: 048
  3. YASMIN [Suspect]
     Active Substance: DROSPIRENONE\ETHINYL ESTRADIOL
     Indication: Polycystic ovarian syndrome
  4. NORETHINDRONE [Suspect]
     Active Substance: NORETHINDRONE
     Indication: Ovarian cyst
     Route: 048
     Dates: start: 2009, end: 202407
  5. NORETHINDRONE [Suspect]
     Active Substance: NORETHINDRONE
     Indication: Ovarian cyst
     Route: 048
  6. ESTRADIOL VALERATE\NORGESTREL [Suspect]
     Active Substance: ESTRADIOL VALERATE\NORGESTREL
     Indication: Reproductive system disorder prophylaxis
     Route: 048
     Dates: start: 2009, end: 202407

REACTIONS (17)
  - Suicidal ideation [Recovered/Resolved]
  - Depressed mood [Recovering/Resolving]
  - Depressed mood [Recovering/Resolving]
  - Off label use [None]
  - Product use in unapproved indication [None]
  - Abnormal withdrawal bleeding [Recovered/Resolved]
  - Dysmenorrhoea [Recovered/Resolved]
  - Crying [Not Recovered/Not Resolved]
  - Mood swings [Not Recovered/Not Resolved]
  - Feeling abnormal [Not Recovered/Not Resolved]
  - Illness [Not Recovered/Not Resolved]
  - Depressive symptom [Recovered/Resolved]
  - Withdrawal bleed [Recovered/Resolved]
  - Off label use [None]
  - Product use in unapproved indication [None]
  - Intentional product misuse [None]
  - Product prescribing issue [None]

NARRATIVE: CASE EVENT DATE: 20190101
